FAERS Safety Report 24467587 (Version 1)
Quarter: 2024Q4

REPORT INFORMATION
  Report Type: Report from Study
  Country: US (occurrence: US)
  Receive Date: 20241018
  Receipt Date: 20241018
  Transmission Date: 20250115
  Serious: No
  Sender: ROCHE
  Company Number: US-ROCHE-3576548

PATIENT
  Age: 21 Year

DRUGS (2)
  1. XOLAIR [Suspect]
     Active Substance: OMALIZUMAB
     Indication: Product used for unknown indication
     Route: 065
  2. BILASTINE [Concomitant]
     Active Substance: BILASTINE

REACTIONS (11)
  - Illness [Unknown]
  - Mental disorder [Unknown]
  - Rash [Unknown]
  - Fatigue [Unknown]
  - Temperature intolerance [Unknown]
  - Pruritus [Unknown]
  - Stress [Unknown]
  - Drug ineffective [Unknown]
  - Ill-defined disorder [Unknown]
  - Laziness [Unknown]
  - Weight increased [Unknown]
